FAERS Safety Report 5067788-0 (Version None)
Quarter: 2006Q3

REPORT INFORMATION
  Report Type: 
  Country: None (occurrence: None)
  Receive Date: 20060802
  Receipt Date: 20060526
  Transmission Date: 20061208
  Serious: Yes (Disabling)
  Sender: FDA-Public Use
  Company Number: JP-JPN-A200601743

PATIENT
  Age: 52 Year
  Sex: Male

DRUGS (3)
  1. PAXIL [Suspect]
     Indication: DEPRESSION
     Dosage: 20MG TWICE PER DAY
     Route: 048
     Dates: start: 20030531
  2. TOLEDOMIN [Suspect]
     Indication: DEPRESSION
     Dosage: 25MG THREE TIMES PER DAY
     Route: 048
     Dates: start: 20030513
  3. SOLANAX [Concomitant]
     Indication: ANXIETY
     Dosage: 1.2MG PER DAY
     Route: 048
     Dates: start: 20060513

REACTIONS (1)
  - EJACULATION DELAYED [None]
